FAERS Safety Report 11661119 (Version 1)
Quarter: 2015Q4

REPORT INFORMATION
  Report Type: Spontaneous
  Country: DE (occurrence: DE)
  Receive Date: 20151026
  Receipt Date: 20151026
  Transmission Date: 20160304
  Serious: Yes (Other)
  Sender: FDA-Public Use
  Company Number: PHHY2015DE137515

PATIENT
  Sex: Female

DRUGS (1)
  1. SANDOSTATIN LAR DEPOT [Suspect]
     Active Substance: OCTREOTIDE ACETATE
     Indication: NEUROENDOCRINE TUMOUR
     Dosage: 20 MG, UNK
     Route: 030
     Dates: start: 20141104, end: 201504

REACTIONS (5)
  - Dry mouth [Unknown]
  - Fatigue [Unknown]
  - Visual impairment [Not Recovered/Not Resolved]
  - Alopecia [Unknown]
  - Hypotonia [Unknown]

NARRATIVE: CASE EVENT DATE: 2015
